FAERS Safety Report 10969975 (Version 1)
Quarter: 2015Q1

REPORT INFORMATION
  Report Type: Spontaneous
  Country: US (occurrence: None)
  Receive Date: 20150330
  Receipt Date: 20150330
  Transmission Date: 20150721
  Serious: No
  Sender: FDA-Public Use
  Company Number: None

PATIENT
  Age: 64 Year
  Sex: Female
  Weight: 38.56 kg

DRUGS (1)
  1. PENICILLIN [Suspect]
     Active Substance: PENICILLIN

REACTIONS (2)
  - Anaphylactic reaction [None]
  - Documented hypersensitivity to administered product [None]
